FAERS Safety Report 7539237-1 (Version None)
Quarter: 2011Q2

REPORT INFORMATION
  Report Type: 
  Country: None (occurrence: None)
  Receive Date: 20110524
  Receipt Date: 20110413
  Transmission Date: 20111010
  Serious: No
  Sender: FDA-Public Use
  Company Number: 031145

PATIENT
  Sex: Female

DRUGS (2)
  1. XANAX [Concomitant]
  2. CIMZIA [Suspect]
     Indication: CROHN'S DISEASE
     Dosage: (400 MG 1X/3 WEEKS SUBCUTANEOUS)
     Route: 058
     Dates: start: 20090618

REACTIONS (1)
  - PAIN [None]
